FAERS Safety Report 4499169-2 (Version None)
Quarter: 2004Q4

REPORT INFORMATION
  Report Type: 
  Country: None (occurrence: None)
  Receive Date: 20041111
  Receipt Date: 20040326
  Transmission Date: 20050328
  Serious: No
  Sender: FDA-Public Use
  Company Number: US-GLAXOSMITHKLINE-A0504790A

PATIENT
  Age: 41 Year
  Sex: Female

DRUGS (2)
  1. RELAFEN [Suspect]
     Indication: ILL-DEFINED DISORDER
     Route: 048
     Dates: start: 20021001, end: 20021001
  2. NO CONCURRENT MEDICATION [Concomitant]

REACTIONS (1)
  - DIARRHOEA [None]
